FAERS Safety Report 11359304 (Version 1)
Quarter: 2015Q3

REPORT INFORMATION
  Report Type: Spontaneous
  Country: US (occurrence: None)
  Receive Date: 20150807
  Receipt Date: 20150807
  Transmission Date: 20151125
  Serious: Yes (Other)
  Sender: FDA-Public Use
  Company Number: None

PATIENT
  Age: 69 Year
  Sex: Female
  Weight: 95.26 kg

DRUGS (12)
  1. ALPRAZOLAM. [Concomitant]
     Active Substance: ALPRAZOLAM
  2. HUMIRA [Concomitant]
     Active Substance: ADALIMUMAB
  3. BYSTOLILS [Concomitant]
  4. FISH OIL [Concomitant]
     Active Substance: FISH OIL
  5. CALCIUM CARBONATE. [Concomitant]
     Active Substance: CALCIUM CARBONATE
  6. LOSARTAN. [Concomitant]
     Active Substance: LOSARTAN
  7. CHOLESTRYAMINE [Concomitant]
  8. METHOTREXATE [Concomitant]
     Active Substance: METHOTREXATE
  9. NASOBAL [Concomitant]
  10. ATOVAQUONE. [Concomitant]
     Active Substance: ATOVAQUONE
  11. ATOVAQUONE 750MG/5ML SUSPENSION AMNEAL PHARMACEUTICALS [Suspect]
     Active Substance: ATOVAQUONE
     Indication: CROHN^S DISEASE
     Dosage: 750/5 MG/ML, BY MOUTH, 2 TEASPOONS
     Dates: start: 20150515
  12. MULTIVITAMIN [Concomitant]
     Active Substance: VITAMINS

REACTIONS (4)
  - Reaction to food additive [None]
  - Nausea [None]
  - Malaise [None]
  - Feeling abnormal [None]

NARRATIVE: CASE EVENT DATE: 20150612
